FAERS Safety Report 5447613-6 (Version None)
Quarter: 2007Q3

REPORT INFORMATION
  Report Type: 
  Country: None (occurrence: None)
  Receive Date: 20070905
  Receipt Date: 20070820
  Transmission Date: 20080115
  Serious: Yes (Hospitalization)
  Sender: FDA-Public Use
  Company Number: DSM-2007-00619

PATIENT
  Age: 76 Year
  Sex: Female

DRUGS (9)
  1. OLMESARTAN MEDOXOMIL [Suspect]
     Indication: HYPERTENSION
     Dosage: 20 MG (20 MG,1 IN 1 D), ORAL
     Route: 048
  2. ESCITALOPRAM [Suspect]
     Dosage: 1 DOSAGE FORMS (1 DOSAGE FORMS, 1 IN 1 D),ORAL
     Route: 048
     Dates: start: 20070129, end: 20070207
  3. LODOZ (HYDROCHLOROTHIAZIDE, BISOPROLOL FUMARATE) (TABLET) (HYDROCHLORO [Suspect]
     Indication: HYPERTENSION
     Dosage: 5 MG/6.25 MG (1 DOSAGE FORMS, 1 IN 1 D), ORAL
     Dates: end: 20070207
  4. PHYSIOTENS (MOXONIDINE) (0.4 MILLIGRAM, TABLET) (MOXONIDINE) [Suspect]
     Indication: HYPERTENSION
     Dosage: 0.4 MG (0.4 MG, 1 IN 1 D), ORAL
     Route: 048
     Dates: end: 20070207
  5. LORAZEPAM [Suspect]
     Dosage: 1 MG (1 MG, 1 IN 1 D),ORAL
     Route: 048
  6. LANSOPRAZOLE [Suspect]
     Dosage: 30 MG (30 MG, 1 IN 1 D), ORAL
     Route: 048
  7. PLAVIX [Concomitant]
  8. LIPANTHYL (FENOFIBRATE) (FENOFINBRATE) [Concomitant]
  9. FLECAINIDE ACETATE [Concomitant]

REACTIONS (6)
  - BLOOD PRESSURE SYSTOLIC INCREASED [None]
  - HAEMOCONCENTRATION [None]
  - HYPONATRAEMIA [None]
  - MALAISE [None]
  - ORTHOSTATIC HYPOTENSION [None]
  - SYNCOPE [None]
